FAERS Safety Report 13313136 (Version 3)
Quarter: 2017Q3

REPORT INFORMATION
  Report Type: Report from Study
  Country: US (occurrence: US)
  Receive Date: 20170309
  Receipt Date: 20170714
  Transmission Date: 20171127
  Serious: No
  Sender: FDA-Public Use
  Company Number: US-VIFOR (INTERNATIONAL) INC.-VIT-2017-02392

PATIENT
  Age: 82 Year
  Sex: Female
  Weight: 65.83 kg

DRUGS (13)
  1. PREDNISONE. [Concomitant]
     Active Substance: PREDNISONE
  2. CARVEDILOL. [Concomitant]
     Active Substance: CARVEDILOL
  3. MYCOPHENOLATE MOFETIL. [Concomitant]
     Active Substance: MYCOPHENOLATE MOFETIL
  4. FUROSEMIDE. [Concomitant]
     Active Substance: FUROSEMIDE
  5. SODIUM BICARBONATE. [Concomitant]
     Active Substance: SODIUM BICARBONATE
  6. METOLAZONE. [Concomitant]
     Active Substance: METOLAZONE
  7. HUMALOG [Concomitant]
     Active Substance: INSULIN LISPRO
  8. LANTUS [Concomitant]
     Active Substance: INSULIN GLARGINE
  9. OMEPRAZOLE. [Concomitant]
     Active Substance: OMEPRAZOLE
  10. VELTASSA [Suspect]
     Active Substance: PATIROMER
     Indication: HYPERTENSIVE NEPHROPATHY
     Route: 048
     Dates: start: 201705
  11. PROGRAF [Concomitant]
     Active Substance: TACROLIMUS\TACROLIMUS ANHYDROUS
  12. FLUTICASONE. [Concomitant]
     Active Substance: FLUTICASONE
  13. LISINOPRIL. [Concomitant]
     Active Substance: LISINOPRIL

REACTIONS (1)
  - Off label use [Unknown]

NARRATIVE: CASE EVENT DATE: 201705
